FAERS Safety Report 9572235 (Version 1)
Quarter: 2013Q3

REPORT INFORMATION
  Report Type: Spontaneous
  Country: US (occurrence: None)
  Receive Date: 20130930
  Receipt Date: 20130930
  Transmission Date: 20140515
  Serious: Yes (Death, Hospitalization)
  Sender: FDA-Public Use
  Company Number: None

PATIENT
  Age: 72 Year
  Sex: Female
  Weight: 76 kg

DRUGS (2)
  1. CYCLOPHOSPHAMIDE [Suspect]
  2. DOCETAXEL [Suspect]

REACTIONS (2)
  - Neutropenic colitis [None]
  - Septic shock [None]
